FAERS Safety Report 5422067-4 (Version None)
Quarter: 2007Q3

REPORT INFORMATION
  Report Type: 
  Country: None (occurrence: None)
  Receive Date: 20070821
  Receipt Date: 20070821
  Transmission Date: 20080115
  Serious: Yes (Hospitalization)
  Sender: FDA-Public Use
  Company Number: None

PATIENT
  Age: 82 Year
  Sex: Male

DRUGS (1)
  1. IBUPROFEN [Suspect]
     Indication: LYMPH NODE PAIN
     Dosage: 200MG EVERY DAY PO
     Route: 048
     Dates: start: 20070718, end: 20070721

REACTIONS (4)
  - DEHYDRATION [None]
  - INCORRECT DOSE ADMINISTERED [None]
  - LYMPH NODE PAIN [None]
  - RENAL FAILURE ACUTE [None]
